FAERS Safety Report 6303240-X (Version None)
Quarter: 2009Q3

REPORT INFORMATION
  Report Type: 
  Country: None (occurrence: None)
  Receive Date: 20090810
  Receipt Date: 20090303
  Transmission Date: 20100115
  Serious: No
  Sender: FDA-Public Use
  Company Number: A0771350A

PATIENT
  Age: 63 Year
  Sex: Female

DRUGS (4)
  1. PAROXETINE HCL [Suspect]
     Indication: DEPRESSION
     Dosage: 20MG PER DAY
     Route: 048
  2. CENTRUM VITAMIN [Concomitant]
  3. NORVASC [Concomitant]
  4. TENORMIN [Concomitant]

REACTIONS (4)
  - ASTHENIA [None]
  - DRUG ADMINISTRATION ERROR [None]
  - HEADACHE [None]
  - IRRITABILITY [None]
